FAERS Safety Report 25738805 (Version 1)
Quarter: 2025Q3

REPORT INFORMATION
  Report Type: Spontaneous
  Country: CA (occurrence: CA)
  Receive Date: 20250829
  Receipt Date: 20250829
  Transmission Date: 20251021
  Serious: Yes (Other)
  Sender: DIFGEN PHARMACEUTICALS LLC
  Company Number: CA-Difgen-012128

PATIENT
  Age: 4 Year
  Sex: Female

DRUGS (1)
  1. CLONIDINE [Suspect]
     Active Substance: CLONIDINE
     Indication: Autism spectrum disorder
     Dosage: CLONIDINE STARTED 1 MONTH FOLLOWING ONSET OF THE ERUPTION.
     Route: 065

REACTIONS (2)
  - Trichostasis spinulosa [Recovered/Resolved]
  - Condition aggravated [Recovered/Resolved]
